FAERS Safety Report 13129283 (Version 2)
Quarter: 2018Q1

REPORT INFORMATION
  Report Type: Report from Study
  Country: ID (occurrence: ID)
  Receive Date: 20170119
  Receipt Date: 20180221
  Transmission Date: 20180508
  Serious: Yes (Other)
  Sender: FDA-Public Use
  Company Number: ID-ROCHE-1880594

PATIENT
  Age: 40 Year
  Sex: Female
  Weight: 59 kg

DRUGS (1)
  1. AVASTIN [Suspect]
     Active Substance: BEVACIZUMAB
     Indication: OVARIAN CANCER
     Route: 065
     Dates: start: 20150819

REACTIONS (10)
  - Eosinophil count increased [Recovering/Resolving]
  - Neutrophil count decreased [Recovered/Resolved]
  - Monocyte count increased [Recovered/Resolved]
  - Lymphocyte count increased [Recovering/Resolving]
  - Haematocrit decreased [Recovering/Resolving]
  - Platelet count decreased [Recovering/Resolving]
  - Leukopenia [Recovering/Resolving]
  - Drug ineffective [Unknown]
  - Anaemia [Recovering/Resolving]
  - Red blood cell count increased [Recovered/Resolved]

NARRATIVE: CASE EVENT DATE: 20170116
